FAERS Safety Report 10246502 (Version 3)
Quarter: 2015Q1

REPORT INFORMATION
  Report Type: Spontaneous
  Country: AR (occurrence: AR)
  Receive Date: 20140619
  Receipt Date: 20150128
  Transmission Date: 20150720
  Serious: Yes (Death)
  Sender: FDA-Public Use
  Company Number: AR-ORION CORPORATION ORION PHARMA-ENTC2014-0215

PATIENT
  Age: 54 Year
  Sex: Male

DRUGS (5)
  1. AMANTADINE [Suspect]
     Active Substance: AMANTADINE
     Indication: PARKINSON^S DISEASE
     Route: 065
  2. LEVODOPA [Suspect]
     Active Substance: LEVODOPA
     Route: 065
  3. CARBIDOPA. [Suspect]
     Active Substance: CARBIDOPA
     Route: 065
  4. RASAGILINE [Suspect]
     Active Substance: RASAGILINE
     Indication: PARKINSON^S DISEASE
     Route: 065
  5. ENTACAPONE. [Suspect]
     Active Substance: ENTACAPONE
     Indication: PARKINSON^S DISEASE
     Route: 065

REACTIONS (2)
  - Ischaemic cardiomyopathy [Fatal]
  - Sudden death [None]

NARRATIVE: CASE EVENT DATE: 20090130
